FAERS Safety Report 17243239 (Version 1)
Quarter: 2020Q1

REPORT INFORMATION
  Report Type: Report from Study
  Country: US (occurrence: US)
  Receive Date: 20200107
  Receipt Date: 20200107
  Transmission Date: 20200409
  Serious: Yes (Hospitalization)
  Sender: FDA-Public Use
  Company Number: US-B.I. PHARMACEUTICALS,INC./RIDGEFIELD-2019-BI-116640

PATIENT
  Age: 86 Year
  Sex: Female

DRUGS (1)
  1. OFEV [Suspect]
     Active Substance: NINTEDANIB
     Indication: IDIOPATHIC PULMONARY FIBROSIS
     Route: 048
     Dates: start: 20191112, end: 201912

REACTIONS (8)
  - Diarrhoea [Unknown]
  - Heart valve incompetence [Unknown]
  - Dehydration [Recovered/Resolved]
  - Muscle spasms [Unknown]
  - Decreased appetite [Unknown]
  - Taste disorder [Unknown]
  - Asthenia [Unknown]
  - Rhinorrhoea [Unknown]

NARRATIVE: CASE EVENT DATE: 20191221
